FAERS Safety Report 23992663 (Version 1)
Quarter: 2024Q2

REPORT INFORMATION
  Report Type: Spontaneous
  Country: NO (occurrence: NO)
  Receive Date: 20240620
  Receipt Date: 20240620
  Transmission Date: 20240716
  Serious: Yes (Other)
  Sender: FDA-Public Use
  Company Number: None

PATIENT
  Age: 18 Year
  Sex: Male

DRUGS (2)
  1. INFLIXIMAB [Suspect]
     Active Substance: INFLIXIMAB
     Indication: Crohn^s disease
     Dosage: AFTER 47.6 ML FLIXABI INFUSION (9 MINUTES), THE PATIENT STARTED FEELING UNWELL.
     Route: 042
     Dates: start: 20240322, end: 20240322
  2. TERRA-CORTRIL [Concomitant]
     Active Substance: HYDROCORTISONE ACETATE\OXYTETRACYCLINE HYDROCHLORIDE
     Indication: Wisdom teeth removal
     Dosage: TREATED WITH ANTIBIOTIC TAMPON IN THE ORAL CAVITY AFTER WISDOM TOOTH REMOVAL. THE TAMPON WAS INSERTE
     Route: 065
     Dates: start: 20240222

REACTIONS (8)
  - Angioedema [Recovered/Resolved]
  - Product substitution issue [Recovered/Resolved]
  - Suspected product quality issue [Recovered/Resolved]
  - Abdominal pain [Recovered/Resolved]
  - Malaise [Recovered/Resolved]
  - Erythema [Recovered/Resolved]
  - General physical health deterioration [Recovered/Resolved]
  - Dyspnoea [Recovered/Resolved]

NARRATIVE: CASE EVENT DATE: 20240322
